FAERS Safety Report 9748856 (Version 1)
Quarter: 2013Q4

REPORT INFORMATION
  Report Type: Spontaneous
  Country: US (occurrence: US)
  Receive Date: 20131212
  Receipt Date: 20131212
  Transmission Date: 20140711
  Serious: Yes (Other)
  Sender: FDA-Public Use
  Company Number: US-BAYER-2013-151263

PATIENT
  Sex: Male

DRUGS (1)
  1. STIVARGA [Suspect]

REACTIONS (3)
  - Blood bilirubin increased [None]
  - Periportal oedema [None]
  - Liver function test abnormal [None]
